FAERS Safety Report 7353589-7 (Version None)
Quarter: 2011Q1

REPORT INFORMATION
  Report Type: 
  Country: None (occurrence: None)
  Receive Date: 20110315
  Receipt Date: 20110315
  Transmission Date: 20110831
  Serious: Yes (Hospitalization)
  Sender: FDA-Public Use
  Company Number: FR-PURDUE-GBR-2010-0006262

PATIENT
  Sex: Female

DRUGS (3)
  1. CELESTENE                          /00008501/ [Concomitant]
  2. ACTISKENAN [Suspect]
     Indication: PAIN
     Route: 048
  3. OXYCONTIN [Suspect]
     Indication: PAIN
     Route: 048

REACTIONS (3)
  - DRUG EXPOSURE DURING PREGNANCY [None]
  - CAESAREAN SECTION [None]
  - PREMATURE BABY [None]
